FAERS Safety Report 4317784-3 (Version None)
Quarter: 2004Q1

REPORT INFORMATION
  Report Type: 
  Country: None (occurrence: None)
  Receive Date: 20040312
  Receipt Date: 20040227
  Transmission Date: 20041129
  Serious: Yes (Hospitalization)
  Sender: FDA-Public Use
  Company Number: 2003SP000061

PATIENT
  Age: 71 Year
  Sex: Female
  Weight: 109.3169 kg

DRUGS (26)
  1. XOPENEX [Suspect]
     Indication: CHRONIC OBSTRUCTIVE AIRWAYS DISEASE
     Dosage: 1.25 MG; Q6H; INHALATION
     Route: 055
     Dates: start: 20031201, end: 20031204
  2. ASPIRIN [Concomitant]
  3. CARDIZEM [Concomitant]
  4. CIMETIDINE HCL [Concomitant]
  5. DIOVAN [Concomitant]
  6. FLOVENT [Concomitant]
  7. FUROSEMIDE [Concomitant]
  8. GLYBURIDE [Concomitant]
  9. ISOSORBIDE MONONITRATE [Concomitant]
  10. METFORMIN HCL [Concomitant]
  11. MONTELUKAST [Concomitant]
  12. NOVOLIN R [Concomitant]
  13. PREDNISONE [Concomitant]
  14. MILK OF MAGNESIA TAB [Concomitant]
  15. IPRATROPIUM BROMIDE [Concomitant]
  16. FAMOTIDINE [Concomitant]
  17. BIDCODYL [Concomitant]
  18. ROCEPHIN [Concomitant]
  19. VICODIN [Concomitant]
  20. ZITHROMAX [Concomitant]
  21. GUAIFENESIN [Concomitant]
  22. NOVALIN R INSULIN [Concomitant]
  23. ALBUTEROL [Concomitant]
  24. PREDNISONE [Concomitant]
  25. COMBIVENT [Concomitant]
  26. INSULIN - SLIDING SCALE [Concomitant]

REACTIONS (12)
  - ABDOMINAL PAIN [None]
  - ANGIOPATHY [None]
  - BLOOD CREATINE INCREASED [None]
  - BRONCHITIS BACTERIAL [None]
  - CHEST PAIN [None]
  - CHEST X-RAY ABNORMAL [None]
  - CHRONIC OBSTRUCTIVE AIRWAYS DISEASE EXACERBATED [None]
  - DILATATION ATRIAL [None]
  - DRUG INEFFECTIVE [None]
  - HEART RATE INCREASED [None]
  - PYREXIA [None]
  - VENTRICULAR DYSFUNCTION [None]
